FAERS Safety Report 8835091 (Version 1)
Quarter: 2012Q4

REPORT INFORMATION
  Report Type: Spontaneous
  Country: IE (occurrence: None)
  Receive Date: 20121009
  Receipt Date: 20121009
  Transmission Date: 20130627
  Serious: Yes (Hospitalization)
  Sender: FDA-Public Use
  Company Number: CIP-2012-00344

PATIENT
  Age: 69 Year
  Sex: Female

DRUGS (2)
  1. CARBOPLATIN [Suspect]
     Indication: SMALL CELL LUNG CANCER
  2. ETOPOSIDE [Suspect]
     Indication: SMALL CELL LUNG CANCER

REACTIONS (10)
  - Posterior reversible encephalopathy syndrome [None]
  - Nausea [None]
  - Fatigue [None]
  - Body temperature increased [None]
  - Blood pressure decreased [None]
  - Pancytopenia [None]
  - Tardive dyskinesia [None]
  - Tongue biting [None]
  - Mouth haemorrhage [None]
  - Urinary incontinence [None]
